FAERS Safety Report 23077498 (Version 1)
Quarter: 2023Q4

REPORT INFORMATION
  Report Type: Spontaneous
  Country: US (occurrence: US)
  Receive Date: 20231018
  Receipt Date: 20231018
  Transmission Date: 20240110
  Serious: Yes (Hospitalization)
  Sender: FDA-Public Use
  Company Number: US-AstraZeneca-2023A098713

PATIENT
  Sex: Female

DRUGS (19)
  1. BUDESONIDE [Suspect]
     Active Substance: BUDESONIDE
     Route: 055
  2. FASENRA [Suspect]
     Active Substance: BENRALIZUMAB
     Indication: Asthma
     Dosage: SOLUTION FOR INJECTION IN PRE-FILLED PEN, 30MG/ML EVERY EIGHT WEEKS
     Route: 058
     Dates: start: 20221019
  3. SYMBICORT [Suspect]
     Active Substance: BUDESONIDE\FORMOTEROL FUMARATE DIHYDRATE
     Route: 055
  4. ALBUTEROL SULFATE [Concomitant]
     Active Substance: ALBUTEROL SULFATE
  5. FEXOFENADINE HYDROCHLORIDE [Concomitant]
     Active Substance: FEXOFENADINE HYDROCHLORIDE
  6. AZELASTINE HYDROCHLORIDE [Concomitant]
     Active Substance: AZELASTINE HYDROCHLORIDE
  7. EPINEPHRINE HYDROCHLORIDE [Concomitant]
     Active Substance: EPINEPHRINE HYDROCHLORIDE
  8. FAMOTIDINE [Concomitant]
     Active Substance: FAMOTIDINE
  9. FLUTICASONE PROPIONATE [Concomitant]
     Active Substance: FLUTICASONE PROPIONATE
  10. IPRATROPIUM BROMIDE [Concomitant]
     Active Substance: IPRATROPIUM BROMIDE\IPRATROPIUM BROMIDE ANHYDROUS
  11. MAGNESIUM CARBONATE [Concomitant]
     Active Substance: MAGNESIUM CARBONATE
  12. VITAMINS NOS [Concomitant]
     Active Substance: VITAMINS
  13. PREDNISONE [Concomitant]
     Active Substance: PREDNISONE
  14. MONTELUKAST SODIUM [Concomitant]
     Active Substance: MONTELUKAST SODIUM
  15. TIOTROPIUM BROMIDE MONOHYDRATE [Concomitant]
     Active Substance: TIOTROPIUM BROMIDE MONOHYDRATE
  16. COBAMAMIDE [Concomitant]
     Active Substance: COBAMAMIDE
  17. ASCORBIC ACID [Concomitant]
     Active Substance: ASCORBIC ACID
  18. ERGOCALCIFEROL [Concomitant]
     Active Substance: ERGOCALCIFEROL
  19. ZINC [Concomitant]
     Active Substance: ZINC

REACTIONS (5)
  - Pneumonia [Unknown]
  - Asthma [Not Recovered/Not Resolved]
  - Quality of life decreased [Not Recovered/Not Resolved]
  - Drug ineffective [Not Recovered/Not Resolved]
  - Product dose omission issue [Unknown]
